FAERS Safety Report 6616085-8 (Version None)
Quarter: 2010Q1

REPORT INFORMATION
  Report Type: 
  Country: None (occurrence: None)
  Receive Date: 20100305
  Receipt Date: 20100222
  Transmission Date: 20100710
  Serious: Yes (Other)
  Sender: FDA-Public Use
  Company Number: PHHY2010JP07664

PATIENT
  Age: 21 Year
  Sex: Male

DRUGS (1)
  1. TEGRETOL [Suspect]
     Indication: EPILEPSY
     Dosage: 500 MG DAILY
     Route: 048

REACTIONS (2)
  - VEIN PAIN [None]
  - VENOUS THROMBOSIS [None]
